FAERS Safety Report 23883434 (Version 3)
Quarter: 2024Q3

REPORT INFORMATION
  Report Type: Spontaneous
  Country: JP (occurrence: JP)
  Receive Date: 20240522
  Receipt Date: 20240708
  Transmission Date: 20241017
  Serious: Yes (Death)
  Sender: ASTELLAS
  Company Number: JP-ASTELLAS-2024US014531

PATIENT
  Age: 80 Year
  Sex: Female

DRUGS (1)
  1. CRESEMBA [Suspect]
     Active Substance: ISAVUCONAZONIUM SULFATE
     Indication: Aspergillus infection
     Route: 041
     Dates: start: 20240412, end: 20240412

REACTIONS (2)
  - Sinusitis [Fatal]
  - Condition aggravated [Fatal]

NARRATIVE: CASE EVENT DATE: 20240412
